FAERS Safety Report 6035955-5 (Version None)
Quarter: 2009Q1

REPORT INFORMATION
  Report Type: 
  Country: None (occurrence: None)
  Receive Date: 20090113
  Receipt Date: 20090105
  Transmission Date: 20090719
  Serious: Yes (Hospitalization)
  Sender: FDA-Public Use
  Company Number: PHHO2009US00500

PATIENT
  Sex: Male
  Weight: 127 kg

DRUGS (7)
  1. LOTREL [Suspect]
     Indication: HYPERTENSION
     Dosage: UNK
     Route: 048
     Dates: start: 20070801
  2. SIROLIMUS [Suspect]
     Indication: RENAL CELL CARCINOMA
     Dosage: UNK
  3. SUNITINIB MALATE [Concomitant]
  4. OXYCODONE HCL [Concomitant]
  5. METFORMIN [Concomitant]
  6. SIMVASTATIN [Concomitant]
  7. LOVENOX [Concomitant]

REACTIONS (3)
  - DRUG INTERACTION [None]
  - HYPERSENSITIVITY [None]
  - SWOLLEN TONGUE [None]
